FAERS Safety Report 8805104 (Version 1)
Quarter: 2012Q4

REPORT INFORMATION
  Report Type: 
  Country: US (occurrence: US)
  Receive Date: 20120924
  Receipt Date: 20120924
  Transmission Date: 20130627
  Serious: No
  Sender: FDA-Public Use
  Company Number: US-ALLERGAN-1210868US

PATIENT
  Age: 58 Year
  Sex: Female

DRUGS (8)
  1. LUMIGAN� 0.01% [Suspect]
     Indication: INCREASED INTRAOCULAR PRESSURE
     Dosage: 2 Gtt, qhs
     Route: 047
     Dates: start: 201207
  2. ZOLOFT                             /01011401/ [Concomitant]
     Indication: DEPRESSION
     Dosage: UNK
  3. LAMICTAL [Concomitant]
     Indication: DEPRESSION
     Dosage: UNK
  4. ZYPREXA [Concomitant]
     Indication: DEPRESSION
     Dosage: UNK
  5. LEVOTHYROXINE [Concomitant]
     Indication: HYPOTHYROIDISM
     Dosage: UNK
  6. OMEPRAZOLE [Concomitant]
     Indication: GERD
     Dosage: UNK
  7. ZOCOR [Concomitant]
     Indication: HYPERCHOLESTEROLEMIA
     Dosage: UNK
  8. ASPIRIN [Concomitant]
     Indication: PREVENTION
     Dosage: UNK

REACTIONS (1)
  - Visual acuity reduced [Not Recovered/Not Resolved]
